FAERS Safety Report 24665094 (Version 1)
Quarter: 2024Q4

REPORT INFORMATION
  Report Type: Spontaneous
  Country: US (occurrence: None)
  Receive Date: 20241125
  Receipt Date: 20241125
  Transmission Date: 20250114
  Serious: Yes (Disabling)
  Sender: Public
  Company Number: None

PATIENT
  Age: 56 Year
  Sex: Male

DRUGS (1)
  1. BIOTIN\FINASTERIDE\KETOCONAZOLE\MINOXIDIL [Suspect]
     Active Substance: BIOTIN\FINASTERIDE\KETOCONAZOLE\MINOXIDIL
     Indication: Androgenetic alopecia
     Dosage: FREQUENCY : DAILY;?OTHER ROUTE : SPRAY;?
     Route: 061
     Dates: start: 20241015, end: 20241112

REACTIONS (5)
  - Depression [None]
  - Brain fog [None]
  - Cognitive disorder [None]
  - Anger [None]
  - Suicidal ideation [None]

NARRATIVE: CASE EVENT DATE: 20241028
